FAERS Safety Report 8989654 (Version 1)
Quarter: 2012Q4

REPORT INFORMATION
  Report Type: 
  Country: JP (occurrence: JP)
  Receive Date: 20121228
  Receipt Date: 20121228
  Transmission Date: 20130627
  Serious: Yes (Hospitalization)
  Sender: FDA-Public Use
  Company Number: JP-AMGEN-JPNSP2012083170

PATIENT
  Age: 56 Year
  Sex: Female

DRUGS (7)
  1. PEGFILGRASTIM [Suspect]
     Indication: PRODUCT USED FOR UNKNOWN INDICATION
     Dosage: UNK
  2. ENBREL [Suspect]
     Indication: RHEUMATOID ARTHRITIS
     Dosage: 50 mg, qwk
     Route: 058
     Dates: start: 20061110
  3. RHEUMATREX                         /00113801/ [Suspect]
     Indication: PRODUCT USED FOR UNKNOWN INDICATION
     Dosage: UNK
     Route: 048
  4. ZALTOPROFEN [Concomitant]
     Dosage: UNK
  5. ALFACALCIDOL [Concomitant]
     Dosage: UNK
  6. ALOSITOL [Concomitant]
     Dosage: UNK
  7. FOLIAMIN [Concomitant]
     Dosage: UNK

REACTIONS (1)
  - Colon cancer [Recovering/Resolving]
